FAERS Safety Report 8813214 (Version 1)
Quarter: 2012Q4

REPORT INFORMATION
  Report Type: 
  Country: US (occurrence: US)
  Receive Date: 20120927
  Receipt Date: 20120927
  Transmission Date: 20130627
  Serious: No
  Sender: FDA-Public Use
  Company Number: US-AMGEN-USASP2012034312

PATIENT
  Age: 81 Year
  Sex: Female

DRUGS (3)
  1. PROLIA [Suspect]
     Indication: OSTEOPOROSIS POSTMENOPAUSAL
     Dosage: 60 mg, q6mo
     Route: 058
     Dates: start: 20120223
  2. VITAMIN D [Concomitant]
     Dosage: UNK
  3. CALCIUM [Concomitant]
     Dosage: UNK

REACTIONS (7)
  - Tooth fracture [Unknown]
  - Tongue injury [Unknown]
  - Paranoia [Unknown]
  - Dementia [Unknown]
  - Tooth loss [Unknown]
  - Nail disorder [Unknown]
  - Walking aid user [Unknown]
